FAERS Safety Report 11427033 (Version 1)
Quarter: 2015Q3

REPORT INFORMATION
  Report Type: Spontaneous
  Country: US (occurrence: US)
  Receive Date: 20150827
  Receipt Date: 20150827
  Transmission Date: 20151125
  Serious: No
  Sender: FDA-Public Use
  Company Number: US-ELI_LILLY_AND_COMPANY-US201508008158

PATIENT
  Sex: Female

DRUGS (3)
  1. LEVEMIR [Concomitant]
     Active Substance: INSULIN DETEMIR
     Route: 065
  2. HUMALOG [Suspect]
     Active Substance: INSULIN LISPRO
     Indication: TYPE 2 DIABETES MELLITUS
     Dosage: UNK
     Route: 065
     Dates: start: 201403
  3. BYDUREON [Concomitant]
     Active Substance: EXENATIDE
     Dosage: UNK, WEEKLY (1/W)
     Route: 065

REACTIONS (3)
  - Injection site discomfort [Unknown]
  - Injection site pain [Unknown]
  - Tremor [Unknown]
